FAERS Safety Report 5382312-0 (Version None)
Quarter: 2007Q3

REPORT INFORMATION
  Report Type: 
  Country: None (occurrence: None)
  Receive Date: 20070709
  Receipt Date: 20070627
  Transmission Date: 20080115
  Serious: Yes (Hospitalization)
  Sender: FDA-Public Use
  Company Number: FR-PFIZER INC-2004115242

PATIENT
  Age: 66 Year
  Sex: Female

DRUGS (5)
  1. ATORVASTATIN CALCIUM [Suspect]
     Indication: HYPERCHOLESTEROLAEMIA
     Route: 048
  2. LIPANTHYL [Suspect]
     Indication: HYPERCHOLESTEROLAEMIA
     Dosage: TEXT:UNKNOWN-FREQ:UNKNOWN
     Route: 048
     Dates: start: 20030601, end: 20030615
  3. PIPRAM [Suspect]
     Indication: URINARY TRACT INFECTION
     Route: 048
     Dates: start: 20030601, end: 20030615
  4. IRBESARTAN [Suspect]
     Indication: ESSENTIAL HYPERTENSION
     Dosage: TEXT:UNKNOWN-FREQ:UNKNOWN
     Route: 048
  5. EURELIX [Suspect]
     Indication: ESSENTIAL HYPERTENSION
     Dosage: TEXT:UNKNOWN-FREQ:UNKNOWN
     Route: 048
     Dates: start: 20030601, end: 20030615

REACTIONS (3)
  - NEPHRITIS INTERSTITIAL [None]
  - RENAL IMPAIRMENT [None]
  - RENAL TUBULAR DISORDER [None]
